FAERS Safety Report 8448422-6 (Version None)
Quarter: 2012Q2

REPORT INFORMATION
  Report Type: 
  Country: None (occurrence: None)
  Receive Date: 20120619
  Receipt Date: 20120607
  Transmission Date: 20120825
  Serious: Yes (Life-Threatening, Other)
  Sender: FDA-Public Use
  Company Number: JP-VERTEX PHARMACEUTICALS INC.-AE-2012-006843

PATIENT
  Age: 64 Year
  Sex: Male

DRUGS (14)
  1. PEG-INTRON [Concomitant]
     Indication: HEPATITIS C
     Route: 058
     Dates: start: 20120313
  2. REBETOL [Concomitant]
     Route: 048
     Dates: start: 20120424
  3. NEO-MINOPHAGEN C [Concomitant]
     Dates: start: 20120321, end: 20120326
  4. TELAVIC (TELAPREVIR) [Suspect]
     Route: 048
     Dates: start: 20120323, end: 20120417
  5. PEG-INTRON [Concomitant]
     Route: 058
     Dates: start: 20120424
  6. REBETOL [Concomitant]
  7. TELAVIC (TELAPREVIR) [Suspect]
     Indication: HEPATITIS C
     Route: 048
     Dates: start: 20120313, end: 20120322
  8. PEG-INTRON [Concomitant]
     Route: 058
  9. REBETOL [Concomitant]
     Route: 048
     Dates: start: 20120323
  10. REBETOL [Concomitant]
     Route: 048
     Dates: start: 20120326, end: 20120501
  11. TELAVIC (TELAPREVIR) [Suspect]
     Route: 048
     Dates: start: 20120323, end: 20120501
  12. PEG-INTRON [Concomitant]
     Route: 058
     Dates: start: 20120326, end: 20120501
  13. PEG-INTRON [Concomitant]
     Route: 058
     Dates: start: 20120327
  14. REBETOL [Concomitant]
     Indication: HEPATITIS C
     Route: 048
     Dates: start: 20120313

REACTIONS (2)
  - MALAISE [None]
  - PLATELET COUNT DECREASED [None]
